FAERS Safety Report 4559247-6 (Version None)
Quarter: 2005Q1

REPORT INFORMATION
  Report Type: 
  Country: None (occurrence: None)
  Receive Date: 20050121
  Receipt Date: 20050121
  Transmission Date: 20050727
  Serious: Yes (Other)
  Sender: FDA-Public Use
  Company Number: None

PATIENT
  Age: 46 Year
  Sex: Male
  Weight: 71.6683 kg

DRUGS (7)
  1. CASPOFUNGIN   50MG [Suspect]
     Indication: FUNGAEMIA
     Dosage: 50MG   DAILY   INTRAVENOU
     Route: 042
     Dates: start: 20050102, end: 20050105
  2. ACYCLOVIR [Concomitant]
  3. CIPROFLOXACIN HCL [Concomitant]
  4. DOCUSATE [Concomitant]
  5. PROTONIX [Concomitant]
  6. VANCOMYCIN [Concomitant]
  7. TYLENOL [Concomitant]

REACTIONS (1)
  - RASH [None]
